FAERS Safety Report 7096226-1 (Version None)
Quarter: 2010Q4

REPORT INFORMATION
  Report Type: 
  Country: None (occurrence: None)
  Receive Date: 20101111
  Receipt Date: 20101028
  Transmission Date: 20110411
  Serious: Yes (Death)
  Sender: FDA-Public Use
  Company Number: CL-ROCHE-740048

PATIENT
  Sex: Female
  Weight: 58 kg

DRUGS (1)
  1. CAPECITABINE [Suspect]
     Indication: BREAST CANCER
     Dosage: FREQUENCY: 1500 MG IN THE MORNING AND 1500 MG IN THE NIGHT
     Route: 048
     Dates: start: 20101001, end: 20101024

REACTIONS (1)
  - DISEASE PROGRESSION [None]
